FAERS Safety Report 25378354 (Version 1)
Quarter: 2025Q2

REPORT INFORMATION
  Report Type: Spontaneous
  Country: SE (occurrence: SE)
  Receive Date: 20250530
  Receipt Date: 20250530
  Transmission Date: 20250717
  Serious: Yes (Life-Threatening)
  Sender: BAXTER
  Company Number: None

PATIENT
  Age: 32 Year
  Sex: Female
  Weight: 118 kg

DRUGS (11)
  1. SODIUM CHLORIDE [Suspect]
     Active Substance: SODIUM CHLORIDE
     Route: 065
     Dates: start: 20250504, end: 20250518
  2. ROCURONIUM [Suspect]
     Active Substance: ROCURONIUM BROMIDE
     Indication: Sedative therapy
     Route: 042
     Dates: start: 20250514, end: 20250514
  3. OXYCODONE [Concomitant]
     Active Substance: OXYCODONE
     Route: 042
     Dates: start: 20250514, end: 20250514
  4. ACETAMINOPHEN [Concomitant]
     Active Substance: ACETAMINOPHEN
     Route: 042
     Dates: start: 20250514, end: 20250514
  5. LIDOCAINE [Concomitant]
     Active Substance: LIDOCAINE
     Route: 066
     Dates: start: 20250514, end: 20250514
  6. Ringer Acetat [Concomitant]
     Route: 042
     Dates: start: 20250514, end: 20250514
  7. FENTANYL [Concomitant]
     Active Substance: FENTANYL
     Route: 042
     Dates: start: 20250514, end: 20250514
  8. KETAMIN [Concomitant]
     Active Substance: KETAMINE
     Route: 042
     Dates: start: 20250514, end: 20250514
  9. NOREPINEPHRINE [Concomitant]
     Active Substance: NOREPINEPHRINE
     Route: 042
     Dates: start: 20250514, end: 20250514
  10. PROPOFOL [Concomitant]
     Active Substance: PROPOFOL
     Route: 042
     Dates: start: 20250514, end: 20250518
  11. ALBUMIN HUMAN [Concomitant]
     Active Substance: ALBUMIN HUMAN
     Route: 042
     Dates: start: 20250514, end: 20250514

REACTIONS (1)
  - Bronchospasm [Recovered/Resolved]

NARRATIVE: CASE EVENT DATE: 20250514
